FAERS Safety Report 24550172 (Version 2)
Quarter: 2025Q2

REPORT INFORMATION
  Report Type: Spontaneous
  Country: US (occurrence: US)
  Receive Date: 20241025
  Receipt Date: 20250519
  Transmission Date: 20250717
  Serious: No
  Sender: PFIZER
  Company Number: US-PFIZER INC-PV202400137818

PATIENT
  Age: 62 Year
  Sex: Female

DRUGS (1)
  1. INLYTA [Suspect]
     Active Substance: AXITINIB
     Dosage: 3 MG, DAILY, 3 TABS BY MOUTH EVERY 12 HRS.
     Route: 048

REACTIONS (2)
  - Diarrhoea [Recovered/Resolved]
  - Blood pressure increased [Unknown]
